FAERS Safety Report 10515849 (Version 1)
Quarter: 2014Q3

REPORT INFORMATION
  Report Type: Spontaneous
  Country: US (occurrence: None)
  Receive Date: 20140926
  Receipt Date: 20140926
  Transmission Date: 20150326
  Serious: No
  Sender: FDA-Public Use
  Company Number: 1000070212

PATIENT
  Age: 30 Year
  Sex: Female

DRUGS (5)
  1. ADDERALL (AMPHETAMINE, DEXTROAMPHETAMINE) [Concomitant]
  2. DOMPERIDONE (DOMPERIDONE) [Concomitant]
     Active Substance: DOMPERIDONE
  3. CYMBALTA [Concomitant]
     Active Substance: DULOXETINE HYDROCHLORIDE
  4. LINZESS [Suspect]
     Active Substance: LINACLOTIDE
     Dates: start: 20140804, end: 20140811
  5. OMEPRAZOLE (OMEPRAZOLE) [Concomitant]
     Active Substance: OMEPRAZOLE

REACTIONS (1)
  - Dysphagia [None]

NARRATIVE: CASE EVENT DATE: 201408
